FAERS Safety Report 6425488-6 (Version None)
Quarter: 2009Q4

REPORT INFORMATION
  Report Type: 
  Country: None (occurrence: None)
  Receive Date: 20091103
  Receipt Date: 20091023
  Transmission Date: 20100525
  Serious: Yes (Hospitalization)
  Sender: FDA-Public Use
  Company Number: GB-PFIZER INC-2009185931

PATIENT
  Age: 33 Year
  Sex: Male

DRUGS (2)
  1. CHAMPIX [Suspect]
     Indication: SMOKING CESSATION THERAPY
     Route: 048
     Dates: start: 20090101, end: 20090202
  2. SUBUTEX [Concomitant]
     Indication: DRUG ABUSE
     Route: 048

REACTIONS (2)
  - PARANOIA [None]
  - SUICIDAL IDEATION [None]
